FAERS Safety Report 9354158 (Version 2)
Quarter: 2013Q2

REPORT INFORMATION
  Report Type: Spontaneous
  Country: CA (occurrence: None)
  Receive Date: 20130613
  Receipt Date: 20130628
  Transmission Date: 20140414
  Serious: Yes (Other)
  Sender: FDA-Public Use
  Company Number: AUR-APL-2013-04871

PATIENT
  Age: 65 Year
  Sex: Female

DRUGS (1)
  1. RAMIPRIL (RAMIPRIL) [Suspect]
     Indication: HYPERTENSION

REACTIONS (8)
  - Chronic obstructive pulmonary disease [None]
  - Depression [None]
  - Anxiety [None]
  - Diabetes mellitus [None]
  - Arthralgia [None]
  - Gait disturbance [None]
  - Cerebrovascular accident [None]
  - Tobacco user [None]
